FAERS Safety Report 12339105 (Version 2)
Quarter: 2016Q2

REPORT INFORMATION
  Report Type: Spontaneous
  Country: US (occurrence: US)
  Receive Date: 20160505
  Receipt Date: 20160505
  Transmission Date: 20160815
  Serious: No
  Sender: FDA-Public Use
  Company Number: US-MAYNE PHARMA-2016MYN000044

PATIENT
  Sex: Female
  Weight: 56.69 kg

DRUGS (3)
  1. LIOTHYRONINE [Suspect]
     Active Substance: LIOTHYRONINE
     Indication: HYPERTHYROIDISM
     Dosage: 12.5 MCG, QD
     Route: 048
     Dates: start: 20160101, end: 20160128
  2. PROBIOTICS                         /07325001/ [Concomitant]
     Active Substance: BIFIDOBACTERIUM LONGUM\LACTOBACILLUS ACIDOPHILUS\LACTOBACILLUS RHAMNOSUS
     Dosage: UNK
  3. LIOTHYRONINE [Suspect]
     Active Substance: LIOTHYRONINE
     Indication: HYPERTHYROIDISM
     Dosage: 5 MCG, QD-BID
     Route: 048
     Dates: start: 20160120, end: 20160128

REACTIONS (2)
  - Abdominal pain [Not Recovered/Not Resolved]
  - Product use issue [None]

NARRATIVE: CASE EVENT DATE: 20160121
